FAERS Safety Report 8680263 (Version 3)
Quarter: 2013Q1

REPORT INFORMATION
  Report Type: Spontaneous
  Country: AU (occurrence: AU)
  Receive Date: 20120724
  Receipt Date: 20130114
  Transmission Date: 20140127
  Serious: Yes (Death, Other)
  Sender: FDA-Public Use
  Company Number: AU-ROCHE-1090932

PATIENT
  Age: 81 Year
  Sex: Male

DRUGS (17)
  1. METALYSE [Suspect]
     Indication: THROMBOLYSIS
     Route: 065
     Dates: start: 20120704, end: 20120704
  2. METALYSE [Suspect]
     Indication: ELECTROCARDIOGRAM ST SEGMENT ELEVATION
  3. ACTONEL [Concomitant]
     Route: 065
  4. LOSEC (AUSTRALIA) [Concomitant]
     Route: 065
  5. CARTIA (AUSTRALIA) [Concomitant]
     Route: 065
  6. GLICLAZIDE [Concomitant]
     Route: 065
  7. MAGMIN [Concomitant]
     Route: 065
  8. LIPITOR [Concomitant]
     Route: 065
  9. ISCOVER [Concomitant]
     Route: 065
  10. MICARDIS [Concomitant]
     Route: 065
  11. SIFROL [Concomitant]
     Route: 065
  12. ASPIRIN [Concomitant]
     Route: 065
  13. MORPHINE [Concomitant]
     Route: 065
  14. CLEXANE [Concomitant]
     Route: 065
  15. GTN [Concomitant]
     Route: 065
  16. ONDANSETRON [Concomitant]
     Route: 065
  17. CLOPIDOGREL [Concomitant]
     Route: 065

REACTIONS (5)
  - Acute respiratory distress syndrome [Fatal]
  - Cardiogenic shock [Fatal]
  - Electrocardiogram ST segment elevation [Recovered/Resolved]
  - Drug ineffective [Unknown]
  - Product quality issue [Unknown]
